FAERS Safety Report 18912542 (Version 1)
Quarter: 2021Q1

REPORT INFORMATION
  Report Type: Other
  Country: US (occurrence: US)
  Receive Date: 20210218
  Receipt Date: 20210218
  Transmission Date: 20210420
  Serious: Yes (Other)
  Sender: FDA-Public Use
  Company Number: US-ROCHE-2771102

PATIENT
  Sex: Female
  Weight: 77.18 kg

DRUGS (1)
  1. OCREVUS [Suspect]
     Active Substance: OCRELIZUMAB
     Indication: RELAPSING-REMITTING MULTIPLE SCLEROSIS
     Dosage: 300 MG ONCE IN 2 WEEKS, THEN 600 MG ONCE IN 6 MONTHS?ON 02/JAN/2020 AND 28/AUG/2020, RECEIVED OCRELI
     Route: 042
     Dates: start: 20191224

REACTIONS (3)
  - Asthenia [Recovering/Resolving]
  - Multiple sclerosis relapse [Not Recovered/Not Resolved]
  - Amnesia [Not Recovered/Not Resolved]

NARRATIVE: CASE EVENT DATE: 2020
